FAERS Safety Report 5320299-7 (Version None)
Quarter: 2007Q2

REPORT INFORMATION
  Report Type: 
  Country: None (occurrence: None)
  Receive Date: 20070503
  Receipt Date: 20070503
  Transmission Date: 20071010
  Serious: Yes (Hospitalization)
  Sender: FDA-Public Use
  Company Number: None

PATIENT
  Age: 77 Year
  Sex: Female
  Weight: 77.1115 kg

DRUGS (10)
  1. ALIMTA [Suspect]
     Indication: NON-SMALL CELL LUNG CANCER
     Dosage: 664 MG Q 2 WEEKS IV
     Route: 042
     Dates: start: 20061019, end: 20070202
  2. GEMCITABINE HCL [Suspect]
     Indication: NON-SMALL CELL LUNG CANCER
     Dosage: 760 MG Q 2 WEEKS IV
     Route: 042
     Dates: start: 20061019, end: 20070202
  3. METAMUCIL [Concomitant]
  4. NORVASC [Concomitant]
  5. XANAX [Concomitant]
  6. PRILOSEC [Concomitant]
  7. COMPAZINE [Concomitant]
  8. CALTRATE [Concomitant]
  9. VITAMIN D [Concomitant]
  10. BEVACIZUMAB [Concomitant]

REACTIONS (3)
  - DEHYDRATION [None]
  - NAUSEA [None]
  - PNEUMONITIS [None]
